FAERS Safety Report 10034148 (Version 1)
Quarter: 2014Q1

REPORT INFORMATION
  Report Type: Spontaneous
  Country: US (occurrence: None)
  Receive Date: 20140324
  Receipt Date: 20140324
  Transmission Date: 20141002
  Serious: Yes (Other)
  Sender: FDA-Public Use
  Company Number: None

PATIENT
  Age: 56 Year
  Sex: Male

DRUGS (1)
  1. FORTEO 20 MCG LILLY [Suspect]
     Indication: OSTEOPOROSIS
     Route: 058
     Dates: start: 20120911

REACTIONS (3)
  - Chills [None]
  - Pyrexia [None]
  - Incorrect product storage [None]
